FAERS Safety Report 19524901 (Version 1)
Quarter: 2021Q3

REPORT INFORMATION
  Report Type: Spontaneous
  Country: US (occurrence: US)
  Receive Date: 20210712
  Receipt Date: 20210712
  Transmission Date: 20211014
  Serious: Yes (Disabling, Other)
  Sender: FDA-Public Use
  Company Number: None

PATIENT
  Age: 17 Month
  Sex: Male
  Weight: 13.5 kg

DRUGS (2)
  1. HYDROCORTISONE 1% ANTI?ITCH CREAM [Suspect]
     Active Substance: HYDROCORTISONE
     Indication: ECZEMA
     Dosage: ?          OTHER FREQUENCY:EVERY DAY FOR ONE;?
     Route: 061
     Dates: start: 20181130, end: 20190725
  2. TRIAMCINOLONE ACETONIDE OINTMENT 1% [Suspect]
     Active Substance: TRIAMCINOLONE ACETONIDE
     Indication: ECZEMA
     Route: 061
     Dates: start: 20190725, end: 20191206

REACTIONS (1)
  - Dermatosis [None]

NARRATIVE: CASE EVENT DATE: 20191206
